FAERS Safety Report 5264877-2 (Version None)
Quarter: 2007Q1

REPORT INFORMATION
  Report Type: 
  Country: None (occurrence: None)
  Receive Date: 20070314
  Receipt Date: 20070228
  Transmission Date: 20070707
  Serious: Yes (Hospitalization, Other)
  Sender: FDA-Public Use
  Company Number: US-ELI_LILLY_AND_COMPANY-US200702005702

PATIENT
  Age: 89 Year
  Sex: Female

DRUGS (6)
  1. FORTEO [Suspect]
     Indication: OSTEOPOROSIS
     Dates: start: 20060908
  2. CALCIUM [Concomitant]
  3. NORVASC [Concomitant]
     Indication: BLOOD PRESSURE
  4. PROTONIX [Concomitant]
  5. AGGRENOX [Concomitant]
  6. POLYETHYLENE GLYCOL [Concomitant]
     Indication: BOWEL MOVEMENT IRREGULARITY

REACTIONS (8)
  - BLOOD MAGNESIUM DECREASED [None]
  - BLOOD POTASSIUM DECREASED [None]
  - CONFUSIONAL STATE [None]
  - CYSTITIS [None]
  - FEELING ABNORMAL [None]
  - TRANSIENT ISCHAEMIC ATTACK [None]
  - VOMITING [None]
  - WALKING AID USER [None]
